FAERS Safety Report 21965632 (Version 1)
Quarter: 2023Q1

REPORT INFORMATION
  Report Type: Spontaneous
  Country: MX (occurrence: None)
  Receive Date: 20230208
  Receipt Date: 20230208
  Transmission Date: 20230418
  Serious: Yes (Hospitalization, Other)
  Sender: FDA-Public Use
  Company Number: MX-Unichem Pharmaceuticals (USA) Inc-UCM202302-000154

PATIENT
  Age: 22 Year
  Sex: Male

DRUGS (1)
  1. AMLODIPINE [Suspect]
     Active Substance: AMLODIPINE BESYLATE
     Indication: Product used for unknown indication
     Dosage: 50 PILLS OF AMLODIPINE 5 MG

REACTIONS (6)
  - Distributive shock [Recovered/Resolved]
  - Stupor [Recovered/Resolved]
  - Hypotension [Recovered/Resolved]
  - Sinus bradycardia [Recovered/Resolved]
  - Toxicity to various agents [Unknown]
  - Overdose [Unknown]
